FAERS Safety Report 24819223 (Version 1)
Quarter: 2025Q1

REPORT INFORMATION
  Report Type: Spontaneous
  Country: US (occurrence: US)
  Receive Date: 20250108
  Receipt Date: 20250108
  Transmission Date: 20250409
  Serious: Yes (Life-Threatening, Hospitalization, Disabling, Other)
  Sender: PFIZER
  Company Number: US-PFIZER INC-PV202500001153

PATIENT
  Age: 55 Year
  Sex: Female
  Weight: 59 kg

DRUGS (16)
  1. CRIZOTINIB [Suspect]
     Active Substance: CRIZOTINIB
     Dosage: 500 MG, 2X/DAY
     Dates: start: 20160211, end: 20160330
  2. CRIZOTINIB [Suspect]
     Active Substance: CRIZOTINIB
     Dosage: 750 MG, DAILY
     Dates: start: 20160330, end: 20160503
  3. ZYKADIA [Suspect]
     Active Substance: CERITINIB
     Indication: Non-small cell lung cancer metastatic
     Dosage: 750 MG, DAILY
     Route: 048
     Dates: start: 20160427, end: 201609
  4. ZYKADIA [Suspect]
     Active Substance: CERITINIB
     Indication: Lung adenocarcinoma
  5. ALECENSA [Suspect]
     Active Substance: ALECTINIB HYDROCHLORIDE
     Indication: Non-small cell lung cancer metastatic
     Dosage: 600 MG, 2X/DAY
     Route: 048
     Dates: start: 20160609
  6. ALECENSA [Suspect]
     Active Substance: ALECTINIB HYDROCHLORIDE
     Route: 048
     Dates: start: 201608
  7. ALECENSA [Suspect]
     Active Substance: ALECTINIB HYDROCHLORIDE
     Dosage: 450 MG
     Route: 048
     Dates: start: 20160908
  8. DEXAMETHASONE [Concomitant]
     Active Substance: DEXAMETHASONE
     Dosage: UNK
  9. PREDNISONE [Concomitant]
     Active Substance: PREDNISONE
  10. DEMECLOCYCLINE [Concomitant]
     Active Substance: DEMECLOCYCLINE
     Dosage: (1 TAB 2 TIME DAILY FOR 30 DAY)
     Route: 048
  11. DEXAMETHASONE SODIUM PHOSPHATE\NEOMYCIN SULFATE [Concomitant]
     Active Substance: DEXAMETHASONE SODIUM PHOSPHATE\NEOMYCIN SULFATE
     Dosage: 1 DF, 2X/DAY
     Route: 048
  12. OXYCODONE [Concomitant]
     Active Substance: OXYCODONE
     Route: 048
  13. PANTOPRAZOLE [Concomitant]
     Active Substance: PANTOPRAZOLE
     Dosage: 1 DF, QD (1 TAB DAILY FOR 364 DAYS)
     Route: 048
  14. PANTOPRAZOLE [Concomitant]
     Active Substance: PANTOPRAZOLE
     Dosage: 40 MG, QD (AT AM)
     Route: 048
  15. POLYETHYLENE GLYCOL 3350 [Concomitant]
     Active Substance: POLYETHYLENE GLYCOL 3350
  16. SODIUM CHLORIDE [Concomitant]
     Active Substance: SODIUM CHLORIDE
     Dosage: 1 MG, QD

REACTIONS (25)
  - Malaise [Unknown]
  - Acute respiratory failure [Unknown]
  - Decreased appetite [Unknown]
  - Back pain [Unknown]
  - Bone pain [Unknown]
  - Pain in jaw [Unknown]
  - Constipation [Unknown]
  - Dehydration [Unknown]
  - Haemoglobin decreased [Unknown]
  - Haematocrit decreased [Unknown]
  - Hyponatraemia [Unknown]
  - Nausea [Unknown]
  - Lymphocyte count decreased [Unknown]
  - Syncope [Unknown]
  - Neurological decompensation [Unknown]
  - Neutrophil count increased [Unknown]
  - Eating disorder [Unknown]
  - Pneumonia [Unknown]
  - Red blood cell count decreased [Unknown]
  - Inappropriate antidiuretic hormone secretion [Unknown]
  - Fatigue [Unknown]
  - White blood cell count increased [Unknown]
  - Neoplasm progression [Unknown]
  - Red cell distribution width increased [Unknown]
  - Off label use [Unknown]

NARRATIVE: CASE EVENT DATE: 20160330
